FAERS Safety Report 13918719 (Version 1)
Quarter: 2017Q3

REPORT INFORMATION
  Report Type: Spontaneous
  Country: US (occurrence: None)
  Receive Date: 20170828
  Receipt Date: 20170828
  Transmission Date: 20171127
  Serious: Yes (Hospitalization)
  Sender: FDA-Public Use
  Company Number: None

PATIENT
  Sex: Female

DRUGS (12)
  1. FUROSEMIDE. [Concomitant]
     Active Substance: FUROSEMIDE
  2. PRADAXA [Concomitant]
     Active Substance: DABIGATRAN ETEXILATE MESYLATE
  3. LOPERAMIDE [Concomitant]
     Active Substance: LOPERAMIDE
  4. QUINAPRIL. [Concomitant]
     Active Substance: QUINAPRIL
  5. ZOLPIDEM [Concomitant]
     Active Substance: ZOLPIDEM\ZOLPIDEM TARTRATE
  6. DILT-XR [Concomitant]
     Active Substance: DILTIAZEM
  7. ALLOPURINOL. [Concomitant]
     Active Substance: ALLOPURINOL
  8. DOXEPIN [Concomitant]
     Active Substance: DOXEPIN
  9. ESBRIET [Suspect]
     Active Substance: PIRFENIDONE
     Indication: IDIOPATHIC INTERSTITIAL PNEUMONIA
     Route: 048
     Dates: start: 20160916
  10. HCTZ [Concomitant]
     Active Substance: HYDROCHLOROTHIAZIDE
  11. PREDNISONE. [Concomitant]
     Active Substance: PREDNISONE
  12. OMEPRAZOLE. [Concomitant]
     Active Substance: OMEPRAZOLE

REACTIONS (4)
  - Pulmonary oedema [None]
  - Drug dose omission [None]
  - Cardiac disorder [None]
  - Abdominal discomfort [None]

NARRATIVE: CASE EVENT DATE: 2017
